FAERS Safety Report 25412211 (Version 1)
Quarter: 2025Q2

REPORT INFORMATION
  Report Type: Spontaneous
  Country: US (occurrence: None)
  Receive Date: 20250606
  Receipt Date: 20250606
  Transmission Date: 20250716
  Serious: Yes (Life-Threatening, Hospitalization)
  Sender: FDA-CTU
  Company Number: None

PATIENT
  Age: 31 Month
  Sex: Male
  Weight: 15.3 kg

DRUGS (1)
  1. BROMPHENIRAMINE\DEXTROMETHORPHAN\PSEUDOEPHEDRINE [Suspect]
     Active Substance: BROMPHENIRAMINE\DEXTROMETHORPHAN\PSEUDOEPHEDRINE
     Indication: Nasopharyngitis
     Route: 048
     Dates: start: 20250604, end: 20250605

REACTIONS (3)
  - Overdose [None]
  - Product dispensing error [None]
  - Insomnia [None]

NARRATIVE: CASE EVENT DATE: 20250604
